FAERS Safety Report 4306071-5 (Version None)
Quarter: 2004Q1

REPORT INFORMATION
  Report Type: 
  Country: None (occurrence: None)
  Receive Date: 20040225
  Receipt Date: 20021218
  Transmission Date: 20041129
  Serious: No
  Sender: FDA-Public Use
  Company Number: US-BRISTOL-MYERS SQUIBB COMPANY-12175998

PATIENT
  Age: 42 Year
  Sex: Female
  Weight: 58 kg

DRUGS (2)
  1. EXCEDRIN ES TABS [Suspect]
     Indication: HEADACHE
     Dosage: DOSAGE: TOOK ONE TABLET AND STILL HAD THE HEADACHE AND THEN TOOK ANOTHER TABLET.
     Route: 048
     Dates: start: 20021218, end: 20021218
  2. CLONIDINE [Concomitant]

REACTIONS (1)
  - DIZZINESS [None]
